FAERS Safety Report 4324875-X (Version None)
Quarter: 2004Q1

REPORT INFORMATION
  Report Type: 
  Country: None (occurrence: None)
  Receive Date: 20040326
  Receipt Date: 20040226
  Transmission Date: 20041129
  Serious: Yes (Death)
  Sender: FDA-Public Use
  Company Number: PHNR2004AU00705

PATIENT
  Age: 2 Year
  Sex: Female

DRUGS (2)
  1. SLOW-K [Suspect]
     Dosage: 1-2 TABLETS PRN
     Route: 048
  2. SLOW-K [Suspect]
     Dosage: UP TO 18 X 600 MG TABLETS
     Route: 048
     Dates: start: 20040220

REACTIONS (9)
  - APNOEA [None]
  - CARDIAC ARREST [None]
  - GASTRIC LAVAGE [None]
  - HYPERKALAEMIA [None]
  - OVERDOSE [None]
  - PALLOR [None]
  - SKIN DISCOLOURATION [None]
  - SYNCOPE [None]
  - VOMITING [None]
